FAERS Safety Report 5235444-1 (Version None)
Quarter: 2007Q1

REPORT INFORMATION
  Report Type: 
  Country: None (occurrence: None)
  Receive Date: 20070208
  Receipt Date: 20070208
  Transmission Date: 20070707
  Serious: Yes (Hospitalization)
  Sender: FDA-Public Use
  Company Number: None

PATIENT
  Sex: Male
  Weight: 100 kg

DRUGS (3)
  1. FLUOROURACIL [Suspect]
     Indication: COLON CANCER STAGE II
     Dosage: 4900 MG
     Dates: end: 20070112
  2. LEUCOVORIN CALCIUM [Suspect]
     Dosage: 900 MG
     Dates: end: 20070110
  3. ELOXATIN [Suspect]
     Dosage: 140 MG
     Dates: end: 20070110

REACTIONS (4)
  - CHEST PAIN [None]
  - DEEP VEIN THROMBOSIS [None]
  - PLEURITIC PAIN [None]
  - PULMONARY EMBOLISM [None]
